FAERS Safety Report 25722426 (Version 9)
Quarter: 2025Q4

REPORT INFORMATION
  Report Type: Spontaneous
  Country: EU (occurrence: EU)
  Receive Date: 20250825
  Receipt Date: 20251219
  Transmission Date: 20260118
  Serious: Yes (Life-Threatening, Hospitalization, Disabling, Other)
  Sender: PFIZER
  Company Number: EU-PFIZER INC-202500166824

PATIENT
  Age: 41 Year
  Sex: Male
  Weight: 80 kg

DRUGS (9)
  1. HYMPAVZI [Suspect]
     Active Substance: MARSTACIMAB-HNCQ
     Indication: Factor VIII deficiency
     Dosage: 150 MG, 2X/DAY
     Route: 058
     Dates: start: 20250714, end: 20250714
  2. HYMPAVZI [Suspect]
     Active Substance: MARSTACIMAB-HNCQ
     Indication: Factor IX deficiency
     Dosage: 150 MG, EVERY 3 DAYS
     Route: 058
     Dates: start: 20250717, end: 20250726
  3. HYMPAVZI [Suspect]
     Active Substance: MARSTACIMAB-HNCQ
     Dosage: 150 MG, DAILY
     Route: 058
     Dates: start: 20250731, end: 20250731
  4. HYMPAVZI [Suspect]
     Active Substance: MARSTACIMAB-HNCQ
     Dosage: 150 MG, EVERY 3 DAYS
     Route: 058
     Dates: start: 20250802, end: 20250805
  5. HYMPAVZI [Suspect]
     Active Substance: MARSTACIMAB-HNCQ
     Dosage: 150 MG, ALTERNATE DAY
     Route: 058
     Dates: start: 20250810, end: 20250812
  6. HYMPAVZI [Suspect]
     Active Substance: MARSTACIMAB-HNCQ
     Dosage: 150 MG, DAILY
     Route: 058
     Dates: start: 20250819, end: 20250819
  7. HYMPAVZI [Suspect]
     Active Substance: MARSTACIMAB-HNCQ
     Dosage: 150 MG
     Route: 058
     Dates: start: 20250801, end: 20250818
  8. EFANESOCTOCOG ALFA [Concomitant]
     Active Substance: EFANESOCTOCOG ALFA
     Indication: Arthralgia
     Dosage: 4000 IU, 1X/DAY
     Dates: start: 20250806
  9. EFANESOCTOCOG ALFA [Concomitant]
     Active Substance: EFANESOCTOCOG ALFA
     Dosage: 4000 IU, 1X/DAY
     Dates: start: 20250808

REACTIONS (4)
  - Deep vein thrombosis [Recovered/Resolved]
  - Myocardial infarction [Recovered/Resolved]
  - Acute myocardial infarction [Recovered/Resolved]
  - Off label use [Unknown]

NARRATIVE: CASE EVENT DATE: 20250713
